FAERS Safety Report 9602021 (Version 3)
Quarter: 2013Q4

REPORT INFORMATION
  Report Type: Spontaneous
  Country: GB (occurrence: GB)
  Receive Date: 20131007
  Receipt Date: 20131129
  Transmission Date: 20140711
  Serious: Yes (Life-Threatening, Hospitalization)
  Sender: FDA-Public Use
  Company Number: PHFR2013GB005596

PATIENT
  Age: 44 Year
  Sex: Male

DRUGS (7)
  1. CLOZARIL [Suspect]
     Indication: SCHIZOPHRENIA
     Dosage: 400 MG, (150 MG, MORNING AND 250 MG NOCTE)
     Route: 048
     Dates: start: 20060111
  2. CLOZARIL [Suspect]
     Dosage: UNK
     Route: 048
  3. CLOZARIL [Suspect]
     Dosage: 400 MG, (150 MG, MORNING AND 250 MG NOCTE)
     Route: 048
  4. ARIPIPRAZOLE [Concomitant]
     Indication: SCHIZOAFFECTIVE DISORDER
     Dosage: 15 MG, UNK
  5. DEPAKOTE [Concomitant]
     Indication: SCHIZOAFFECTIVE DISORDER
     Dosage: 1 G, UNK
     Route: 048
  6. TERAZOSIN [Concomitant]
     Indication: SCHIZOAFFECTIVE DISORDER
     Dosage: 2 MG, UNK
     Route: 048
  7. OMEPRAZOLE [Concomitant]
     Indication: SCHIZOAFFECTIVE DISORDER
     Dosage: 20 MG, UNK

REACTIONS (2)
  - Stab wound [Recovered/Resolved]
  - Overdose [Recovered/Resolved]
